FAERS Safety Report 4452261-0 (Version None)
Quarter: 2004Q3

REPORT INFORMATION
  Report Type: 
  Country: None (occurrence: None)
  Receive Date: 20040917
  Receipt Date: 20040908
  Transmission Date: 20050211
  Serious: Yes (Hospitalization)
  Sender: FDA-Public Use
  Company Number: US-AMGEN-US090123

PATIENT
  Sex: Female
  Weight: 83.5 kg

DRUGS (8)
  1. NEULASTA [Suspect]
     Indication: CHEMOTHERAPY
     Dates: start: 20040722
  2. GEMCITABINE HYDROCHLORIDE [Suspect]
     Route: 042
     Dates: start: 20040722
  3. OXALIPLATIN [Suspect]
     Dates: start: 20040722
  4. RITUXIMAB [Suspect]
     Dates: start: 20040722
  5. LOSARTAN POTASSIUM [Concomitant]
  6. LEVOTHYROXINE SODIUM [Concomitant]
  7. OXYCONTIN [Concomitant]
  8. TRIMETHOBENZAMIDE HCL [Concomitant]

REACTIONS (3)
  - ACUTE LYMPHOCYTIC LEUKAEMIA [None]
  - PANCYTOPENIA [None]
  - PNEUMONIA [None]
